FAERS Safety Report 18179810 (Version 2)
Quarter: 2020Q4

REPORT INFORMATION
  Report Type: Other
  Country: CA (occurrence: CA)
  Receive Date: 20200821
  Receipt Date: 20201006
  Transmission Date: 20210113
  Serious: Yes (Other)
  Sender: FDA-Public Use
  Company Number: CA-APOTEX-2020AP016373

PATIENT
  Sex: Female

DRUGS (2)
  1. OLOPATADINE. [Suspect]
     Active Substance: OLOPATADINE
     Dosage: UNK, BID
     Route: 047
  2. OLOPATADINE. [Suspect]
     Active Substance: OLOPATADINE
     Indication: EYE PRURITUS
     Dosage: UNK
     Route: 047

REACTIONS (6)
  - Incorrect dose administered [Not Recovered/Not Resolved]
  - Cataract [Not Recovered/Not Resolved]
  - Eye pain [Not Recovered/Not Resolved]
  - Concomitant disease aggravated [Not Recovered/Not Resolved]
  - Vision blurred [Not Recovered/Not Resolved]
  - Drug ineffective [Not Recovered/Not Resolved]
